FAERS Safety Report 15005549 (Version 1)
Quarter: 2018Q2

REPORT INFORMATION
  Report Type: Spontaneous
  Country: IT (occurrence: IT)
  Receive Date: 20180613
  Receipt Date: 20180613
  Transmission Date: 20180711
  Serious: Yes (Other)
  Sender: FDA-Public Use
  Company Number: IT-ELI_LILLY_AND_COMPANY-IT201806005202

PATIENT
  Sex: Female

DRUGS (1)
  1. FORSTEO 250UG/ML [Suspect]
     Active Substance: TERIPARATIDE
     Indication: PRODUCT USED FOR UNKNOWN INDICATION
     Dosage: UNK UNK, UNKNOWN
     Route: 065

REACTIONS (6)
  - Myalgia [Recovering/Resolving]
  - Urinary incontinence [Not Recovered/Not Resolved]
  - Tachycardia [Recovering/Resolving]
  - Nausea [Recovering/Resolving]
  - Femur fracture [Unknown]
  - Pain in extremity [Recovering/Resolving]
